FAERS Safety Report 6435395-0 (Version None)
Quarter: 2009Q4

REPORT INFORMATION
  Report Type: 
  Country: None (occurrence: None)
  Receive Date: 20091106
  Receipt Date: 20091027
  Transmission Date: 20100525
  Serious: Yes (Other)
  Sender: FDA-Public Use
  Company Number: 232365J09USA

PATIENT
  Age: 60 Year
  Sex: Female

DRUGS (6)
  1. REBIF [Suspect]
     Indication: MULTIPLE SCLEROSIS
     Dosage: 22 MCG; 44 MCG
     Dates: start: 20090427, end: 20090101
  2. REBIF [Suspect]
     Indication: MULTIPLE SCLEROSIS
     Dosage: 22 MCG; 44 MCG
     Dates: start: 20090101, end: 20090601
  3. UNSPECIFIED 17 MEDICATIONS(ALL OTHER THERAPEUTIC PRODUCTS) [Concomitant]
  4. METFORMIN HCL [Concomitant]
  5. PAXIL [Concomitant]
  6. BLOOD PRESSURE MEDICATION (ANTIHYPERTENSIVES) [Concomitant]

REACTIONS (2)
  - LIVER FUNCTION TEST ABNORMAL [None]
  - YELLOW SKIN [None]
